FAERS Safety Report 12334353 (Version 3)
Quarter: 2016Q4

REPORT INFORMATION
  Report Type: Report from Study
  Country: IT (occurrence: IT)
  Receive Date: 20160504
  Receipt Date: 20161011
  Transmission Date: 20170207
  Serious: Yes (Life-Threatening, Other)
  Sender: FDA-Public Use
  Company Number: PHHY2014IT026088

PATIENT
  Age: 61 Year
  Sex: Male

DRUGS (7)
  1. LOBIVON [Concomitant]
     Active Substance: NEBIVOLOL HYDROCHLORIDE
     Indication: HYPERTENSION
     Dosage: 1 DF, UNK
     Route: 065
  2. ACUTIL FOSFORO [Concomitant]
     Active Substance: DIETARY SUPPLEMENT
     Indication: HYPOPHOSPHATAEMIA
     Dosage: 1 DF, UNK (1 POS UNIT)
     Route: 065
  3. TORVAST [Concomitant]
     Active Substance: ATORVASTATIN
     Indication: HYPERCHOLESTEROLAEMIA
     Dosage: 1 DF, UNK(1 POS UNIT)
     Route: 065
  4. TASIGNA [Suspect]
     Active Substance: NILOTINIB
     Indication: CHRONIC MYELOID LEUKAEMIA
     Dosage: 600 MG, QD
     Route: 048
     Dates: start: 20101213, end: 20140128
  5. TASIGNA [Suspect]
     Active Substance: NILOTINIB
     Dosage: UNK
     Route: 048
     Dates: start: 20140218, end: 20150126
  6. TASIGNA [Suspect]
     Active Substance: NILOTINIB
     Dosage: 150 MG, BID
     Route: 048
     Dates: start: 20150209, end: 20150324
  7. CARDURA [Concomitant]
     Active Substance: DOXAZOSIN MESYLATE
     Indication: HYPERTENSION
     Dosage: 1 DF, UNK
     Route: 065

REACTIONS (8)
  - Lipase increased [Unknown]
  - Hypophosphataemia [Not Recovered/Not Resolved]
  - Hyperuricaemia [Unknown]
  - Lipase increased [Recovered/Resolved]
  - Weight increased [Unknown]
  - Amylase increased [Not Recovered/Not Resolved]
  - Hyperglycaemia [Unknown]
  - Concomitant disease aggravated [Not Recovered/Not Resolved]

NARRATIVE: CASE EVENT DATE: 20140128
